FAERS Safety Report 21888071 (Version 1)
Quarter: 2023Q1

REPORT INFORMATION
  Report Type: Spontaneous
  Country: GB (occurrence: None)
  Receive Date: 20230120
  Receipt Date: 20230120
  Transmission Date: 20230417
  Serious: Yes (Other)
  Sender: FDA-Public Use
  Company Number: GB-INFO-20230008

PATIENT
  Age: 2 Decade
  Sex: Male

DRUGS (1)
  1. CIPROFLOXACIN [Suspect]
     Active Substance: CIPROFLOXACIN
     Indication: Gastrointestinal bacterial overgrowth
     Dosage: ()

REACTIONS (2)
  - Vitamin K deficiency [Recovered/Resolved]
  - Condition aggravated [Recovered/Resolved]
